FAERS Safety Report 4265039-8 (Version None)
Quarter: 2004Q1

REPORT INFORMATION
  Report Type: 
  Country: None (occurrence: None)
  Receive Date: 20040105
  Receipt Date: 20031219
  Transmission Date: 20041129
  Serious: Yes (Death)
  Sender: FDA-Public Use
  Company Number: 2003EU007355

PATIENT
  Age: 28 Year
  Sex: Male

DRUGS (9)
  1. PROGRAF [Suspect]
     Indication: LUNG TRANSPLANT
     Dosage: SEE IMAGE
     Route: 048
     Dates: start: 20010215, end: 20020801
  2. PROGRAF [Suspect]
     Indication: LUNG TRANSPLANT
     Dosage: SEE IMAGE
     Route: 048
     Dates: start: 20020801, end: 20021010
  3. PROGRAF [Suspect]
     Indication: LUNG TRANSPLANT
     Dosage: SEE IMAGE
     Route: 048
     Dates: start: 20030315, end: 20030816
  4. PROGRAF [Suspect]
     Indication: LUNG TRANSPLANT
     Dosage: SEE IMAGE
     Route: 048
     Dates: start: 20030829, end: 20031124
  5. CELLCEPT [Suspect]
     Dosage: ORAL
     Route: 048
     Dates: start: 20010215, end: 20030715
  6. PREDNISONE [Suspect]
     Dosage: 10 MG, UID/QD, ORAL
     Route: 048
     Dates: start: 20010215, end: 20031124
  7. NEORAL [Suspect]
     Dosage: UNK, UNKNOWN/D, ORAL
     Route: 048
     Dates: start: 20021010, end: 20030315
  8. RAPAMUNE [Suspect]
     Dosage: UNK, UNKNOWN/D, UNKNOWN
     Dates: start: 20030816, end: 20030829
  9. SPORANOX [Suspect]
     Dosage: UNK, UNKNOWN/D, UNKNOWN

REACTIONS (20)
  - ACUTE RESPIRATORY DISTRESS SYNDROME [None]
  - BACTERIA SPUTUM IDENTIFIED [None]
  - BRONCHOPULMONARY ASPERGILLOSIS [None]
  - CACHEXIA [None]
  - CANDIDIASIS [None]
  - DIABETES MELLITUS [None]
  - HAEMOPHILUS INFECTION [None]
  - INFLUENZA [None]
  - MULTI-ORGAN FAILURE [None]
  - MYOPATHY [None]
  - OVERDOSE [None]
  - PATHOGEN RESISTANCE [None]
  - PSEUDOMONAS INFECTION [None]
  - PULMONARY FIBROSIS [None]
  - RESPIRATORY FAILURE [None]
  - RESPIRATORY TRACT INFECTION [None]
  - RESTRICTIVE PULMONARY DISEASE [None]
  - SALMONELLOSIS [None]
  - STAPHYLOCOCCAL INFECTION [None]
  - WEIGHT DECREASED [None]
